FAERS Safety Report 4263229-1 (Version None)
Quarter: 2004Q1

REPORT INFORMATION
  Report Type: 
  Country: None (occurrence: None)
  Receive Date: 20040104
  Receipt Date: 20040104
  Transmission Date: 20041129
  Serious: Yes (Hospitalization)
  Sender: FDA-Public Use
  Company Number: None

PATIENT
  Age: 55 Year
  Sex: Male
  Weight: 98.3398 kg

DRUGS (1)
  1. BUPROPION HCL [Suspect]
     Indication: EX-SMOKER
     Dosage: 100 MG BID

REACTIONS (3)
  - CLAVICLE FRACTURE [None]
  - CONVULSION [None]
  - FALL [None]
